FAERS Safety Report 17812057 (Version 1)
Quarter: 2020Q2

REPORT INFORMATION
  Report Type: Spontaneous
  Country: CN (occurrence: CN)
  Receive Date: 20200521
  Receipt Date: 20200521
  Transmission Date: 20200714
  Serious: Yes (Other)
  Sender: FDA-Public Use
  Company Number: CN-PFIZER INC-2020198324

PATIENT
  Age: 64 Year
  Weight: 51 kg

DRUGS (2)
  1. GLUCOSE LIQUID [Concomitant]
     Dosage: 500 ML
     Route: 041
     Dates: start: 2003, end: 2003
  2. PACLITAXEL. [Suspect]
     Active Substance: PACLITAXEL
     Indication: CHEMOTHERAPY
     Dosage: 120 MG
     Route: 041
     Dates: start: 2003, end: 2003

REACTIONS (1)
  - Generalised tonic-clonic seizure [Recovered/Resolved]

NARRATIVE: CASE EVENT DATE: 2003
